FAERS Safety Report 8872202 (Version 1)
Quarter: 2012Q4

REPORT INFORMATION
  Report Type: 
  Country: US (occurrence: US)
  Receive Date: 20121026
  Receipt Date: 20121026
  Transmission Date: 20130627
  Serious: No
  Sender: FDA-Public Use
  Company Number: US-AMGEN-USASP2012048977

PATIENT
  Age: 48 Year
  Sex: Female
  Weight: 72.56 kg

DRUGS (7)
  1. ENBREL [Suspect]
     Indication: PRODUCT USED FOR UNKNOWN INDICATION
     Dosage: 50 mg, qwk
     Route: 058
  2. LUNESTA [Concomitant]
     Dosage: 1 mg, UNK
  3. MULTIVITAMIN                       /00097801/ [Concomitant]
     Dosage: UNK
  4. VITAMIN D /00107901/ [Concomitant]
     Dosage: 400 UNK, UNK
  5. FISH OIL [Concomitant]
     Dosage: UNK
  6. GARLIC                             /01570501/ [Concomitant]
     Dosage: 3 mg, UNK
  7. CLARITIN                           /00413701/ [Concomitant]
     Dosage: 10 mg, UNK

REACTIONS (1)
  - Therapeutic response decreased [Recovering/Resolving]
